FAERS Safety Report 8885951 (Version 1)
Quarter: 2012Q4

REPORT INFORMATION
  Report Type: 
  Country: BR (occurrence: BR)
  Receive Date: 20121105
  Receipt Date: 20121105
  Transmission Date: 20130627
  Serious: Yes (Hospitalization, Other)
  Sender: FDA-Public Use
  Company Number: BR-NOVOPROD-362946

PATIENT
  Sex: Male

DRUGS (1)
  1. NOVORAPID FLEXPEN [Suspect]
     Indication: PRODUCT USED FOR UNKNOWN INDICATION
     Dosage: Unknown
     Route: 065

REACTIONS (1)
  - Renal failure [Unknown]
